FAERS Safety Report 14898323 (Version 2)
Quarter: 2018Q2

REPORT INFORMATION
  Report Type: Spontaneous
  Country: US (occurrence: US)
  Receive Date: 20180515
  Receipt Date: 20180517
  Transmission Date: 20180711
  Serious: No
  Sender: FDA-Public Use
  Company Number: US-SA-2018SA108932

PATIENT
  Sex: Female

DRUGS (5)
  1. TOUJEO [Suspect]
     Active Substance: INSULIN GLARGINE
     Route: 051
  2. SOLOSTAR [Suspect]
     Active Substance: DEVICE
     Route: 065
  3. VICTOZA [Suspect]
     Active Substance: LIRAGLUTIDE
     Route: 065
  4. LANTUS [Suspect]
     Active Substance: INSULIN GLARGINE
     Route: 051
  5. SOLOSTAR [Suspect]
     Active Substance: DEVICE
     Route: 065

REACTIONS (3)
  - Feeling of body temperature change [Unknown]
  - Pain [Unknown]
  - Palpitations [Unknown]
